FAERS Safety Report 8055303-9 (Version None)
Quarter: 2011Q4

REPORT INFORMATION
  Report Type: 
  Country: None (occurrence: None)
  Receive Date: 20111213
  Receipt Date: 20111025
  Transmission Date: 20120403
  Serious: Yes (Other)
  Sender: FDA-Public Use
  Company Number: 2011SP050656

PATIENT
  Age: 47 Year
  Sex: Female

DRUGS (3)
  1. CELEXA [Concomitant]
  2. SAPHRIS [Suspect]
     Indication: AFFECTIVE DISORDER
     Dosage: 5 MG;HS/SL  : 5 MG;ONCE;SL
     Route: 060
     Dates: start: 20111026, end: 20111026
  3. SAPHRIS [Suspect]
     Indication: AFFECTIVE DISORDER
     Dosage: 5 MG;HS/SL  : 5 MG;ONCE;SL
     Route: 060
     Dates: start: 20110810, end: 20111015

REACTIONS (5)
  - DEPRESSION [None]
  - ANXIETY [None]
  - INAPPROPRIATE SCHEDULE OF DRUG ADMINISTRATION [None]
  - UNDERDOSE [None]
  - DYSTONIA [None]
